FAERS Safety Report 4642231-1 (Version None)
Quarter: 2005Q2

REPORT INFORMATION
  Report Type: 
  Country: None (occurrence: None)
  Receive Date: 20050422
  Receipt Date: 20050415
  Transmission Date: 20051028
  Serious: Yes (Other)
  Sender: FDA-Public Use
  Company Number: US-BRISTOL-MYERS SQUIBB COMPANY-12934170

PATIENT
  Age: 58 Year
  Sex: Female

DRUGS (1)
  1. ERBITUX [Suspect]
     Indication: COLORECTAL CANCER
     Dosage: THERAPY START DATE APR 2004, REC'D 29 TOTAL DOSES.
     Route: 042

REACTIONS (2)
  - HYPOCALCAEMIA [None]
  - HYPOMAGNESAEMIA [None]
